FAERS Safety Report 13596011 (Version 1)
Quarter: 2017Q2

REPORT INFORMATION
  Report Type: Spontaneous
  Country: US (occurrence: US)
  Receive Date: 20170531
  Receipt Date: 20170531
  Transmission Date: 20170830
  Serious: No
  Sender: FDA-Public Use
  Company Number: US-JNJFOC-20170304288

PATIENT
  Age: 82 Year
  Sex: Female
  Weight: 50.8 kg

DRUGS (3)
  1. TYLENOL 8 HR ARTHRITIS PAIN [Suspect]
     Active Substance: ACETAMINOPHEN
     Route: 048
  2. TYLENOL 8 HR ARTHRITIS PAIN [Suspect]
     Active Substance: ACETAMINOPHEN
     Indication: ARTHRALGIA
     Dosage: EVERY 6 HOURS
     Route: 048
     Dates: start: 201702, end: 201702
  3. DOFETILIDE. [Concomitant]
     Active Substance: DOFETILIDE
     Indication: ATRIAL FIBRILLATION
     Route: 065
     Dates: start: 2015

REACTIONS (4)
  - Feeling abnormal [Recovered/Resolved]
  - Dyspnoea [Recovered/Resolved]
  - Off label use [Recovered/Resolved]
  - Drug prescribing error [Recovered/Resolved]

NARRATIVE: CASE EVENT DATE: 201702
